FAERS Safety Report 14688017 (Version 1)
Quarter: 2018Q1

REPORT INFORMATION
  Report Type: Spontaneous
  Country: US (occurrence: US)
  Receive Date: 20180328
  Receipt Date: 20180328
  Transmission Date: 20180509
  Serious: No
  Sender: FDA-Public Use
  Company Number: US-PFIZER INC-2018123795

PATIENT
  Age: 71 Year

DRUGS (3)
  1. LYRICA [Suspect]
     Active Substance: PREGABALIN
     Indication: FIBROMYALGIA
     Dosage: 25 MG, UNK
     Dates: start: 2018
  2. DILAUDID [Suspect]
     Active Substance: HYDROMORPHONE HYDROCHLORIDE
     Dosage: 3 MG, UNK
  3. CODEINE [Suspect]
     Active Substance: CODEINE
     Dosage: 60 MG, UNK

REACTIONS (3)
  - Muscle spasms [Unknown]
  - Feeling abnormal [Recovering/Resolving]
  - Chest pain [Unknown]
